FAERS Safety Report 21240193 (Version 1)
Quarter: 2022Q3

REPORT INFORMATION
  Report Type: Spontaneous
  Country: US (occurrence: US)
  Receive Date: 20220822
  Receipt Date: 20220822
  Transmission Date: 20221026
  Serious: No
  Sender: FDA-Public Use
  Company Number: US-009507513-2207USA008401

PATIENT
  Age: 67 Year
  Sex: Male

DRUGS (11)
  1. KEYTRUDA [Suspect]
     Active Substance: PEMBROLIZUMAB
     Indication: Liposarcoma metastatic
  2. KEYTRUDA [Suspect]
     Active Substance: PEMBROLIZUMAB
     Indication: Dedifferentiated liposarcoma
  3. KEYTRUDA [Suspect]
     Active Substance: PEMBROLIZUMAB
     Indication: Malignant neoplasm progression
  4. NIVOLUMAB [Concomitant]
     Active Substance: NIVOLUMAB
     Indication: Liposarcoma metastatic
  5. NIVOLUMAB [Concomitant]
     Active Substance: NIVOLUMAB
     Indication: Dedifferentiated liposarcoma
  6. NIVOLUMAB [Concomitant]
     Active Substance: NIVOLUMAB
     Indication: Malignant neoplasm progression
  7. IPILIMUMAB [Concomitant]
     Active Substance: IPILIMUMAB
     Indication: Liposarcoma metastatic
  8. IPILIMUMAB [Concomitant]
     Active Substance: IPILIMUMAB
     Indication: Dedifferentiated liposarcoma
  9. IPILIMUMAB [Concomitant]
     Active Substance: IPILIMUMAB
     Indication: Malignant neoplasm progression
  10. PREDNISONE [Concomitant]
     Active Substance: PREDNISONE
     Indication: Liposarcoma metastatic
     Dosage: 20 MILLIGRAM, QD
  11. PREDNISONE [Concomitant]
     Active Substance: PREDNISONE
     Indication: Dedifferentiated liposarcoma

REACTIONS (1)
  - Product use in unapproved indication [Unknown]
